FAERS Safety Report 5575089-7 (Version None)
Quarter: 2007Q4

REPORT INFORMATION
  Report Type: 
  Country: None (occurrence: None)
  Receive Date: 20071130
  Receipt Date: 20070919
  Transmission Date: 20080405
  Serious: No
  Sender: FDA-Public Use
  Company Number: PHEH2007US12666

PATIENT
  Sex: Male

DRUGS (3)
  1. TEKTURNA [Suspect]
     Dosage: 150 MG BID ORAL; 300 MG QD ORAL
     Route: 048
  2. PREDNISONE TAB [Concomitant]
  3. LASIX [Concomitant]

REACTIONS (4)
  - ANXIETY [None]
  - DYSPEPSIA [None]
  - INSOMNIA [None]
  - MALAISE [None]
